FAERS Safety Report 20578608 (Version 2)
Quarter: 2022Q1

REPORT INFORMATION
  Report Type: Spontaneous
  Country: IR (occurrence: IR)
  Receive Date: 20220310
  Receipt Date: 20220315
  Transmission Date: 20220423
  Serious: Yes (Other)
  Sender: FDA-Public Use
  Company Number: IR-MLMSERVICE-20220223-3393183-1

PATIENT
  Age: 31 Year
  Sex: Male

DRUGS (2)
  1. SERTRALINE [Suspect]
     Active Substance: SERTRALINE HYDROCHLORIDE
     Indication: Major depression
     Dosage: 50 MILLIGRAM, QD
     Route: 065
  2. SERTRALINE [Suspect]
     Active Substance: SERTRALINE HYDROCHLORIDE
     Dosage: 400 MILLIGRAM, QD
     Route: 065

REACTIONS (2)
  - Proctalgia [Recovered/Resolved]
  - Rectal haemorrhage [Recovered/Resolved]
